FAERS Safety Report 4706341-2 (Version None)
Quarter: 2005Q2

REPORT INFORMATION
  Report Type: 
  Country: None (occurrence: None)
  Receive Date: 20050629
  Receipt Date: 20050617
  Transmission Date: 20051028
  Serious: Yes (Other)
  Sender: FDA-Public Use
  Company Number: 2005-BP-10567RO

PATIENT
  Age: 5 Year
  Sex: Male
  Weight: 23 kg

DRUGS (1)
  1. MIDAZOLAM HCL [Suspect]
     Indication: SEDATION
     Dosage: 1 ML (5 MG) X 1 DOSE, IN
     Route: 055

REACTIONS (6)
  - HYPERSENSITIVITY [None]
  - PERIORBITAL OEDEMA [None]
  - PRURITUS [None]
  - REFUSAL OF TREATMENT BY PATIENT [None]
  - SKIN OEDEMA [None]
  - URTICARIA [None]
